FAERS Safety Report 6011984-2 (Version None)
Quarter: 2008Q4

REPORT INFORMATION
  Report Type: 
  Country: None (occurrence: None)
  Receive Date: 20081218
  Receipt Date: 20081020
  Transmission Date: 20090506
  Serious: No
  Sender: FDA-Public Use
  Company Number: US-ASTRAZENECA-2008UW23136

PATIENT
  Age: 40 Year
  Sex: Female

DRUGS (3)
  1. CRESTOR [Suspect]
     Route: 048
  2. BONIVA [Concomitant]
     Dates: start: 20080901
  3. BONIVA [Concomitant]
     Dates: start: 20081001

REACTIONS (5)
  - BONE PAIN [None]
  - CHEST PAIN [None]
  - DIZZINESS [None]
  - DYSPHAGIA [None]
  - MOBILITY DECREASED [None]
